FAERS Safety Report 11015594 (Version 2)
Quarter: 2015Q2

REPORT INFORMATION
  Report Type: Spontaneous
  Country: US (occurrence: US)
  Receive Date: 20150412
  Receipt Date: 20150525
  Transmission Date: 20150821
  Serious: No
  Sender: FDA-Public Use
  Company Number: US-JNJFOC-20140700900

PATIENT
  Age: 74 Year
  Sex: Male
  Weight: 73.94 kg

DRUGS (12)
  1. REMICADE [Suspect]
     Active Substance: INFLIXIMAB
     Indication: COLITIS ULCERATIVE
     Route: 042
  2. IMODIUM A?D [Concomitant]
     Dosage: AFTER 1ST LOOSE STOOL AND AFTER EACH NEXT??BOWEL MOVEMENT
     Route: 048
     Dates: start: 20131212
  3. PREDNISONE. [Suspect]
     Active Substance: PREDNISONE
     Indication: PRODUCT USED FOR UNKNOWN INDICATION
     Route: 048
     Dates: start: 20131004
  4. LISINOPRIL. [Concomitant]
     Active Substance: LISINOPRIL
     Route: 048
  5. LOMOTIL [Concomitant]
     Active Substance: ATROPINE SULFATE\DIPHENOXYLATE HYDROCHLORIDE
     Route: 065
  6. PREDNISONE. [Suspect]
     Active Substance: PREDNISONE
     Indication: PRODUCT USED FOR UNKNOWN INDICATION
     Route: 048
     Dates: start: 20130626
  7. PREDNISONE. [Suspect]
     Active Substance: PREDNISONE
     Indication: PRODUCT USED FOR UNKNOWN INDICATION
     Route: 048
     Dates: start: 20130718
  8. PREDNISONE. [Suspect]
     Active Substance: PREDNISONE
     Indication: PRODUCT USED FOR UNKNOWN INDICATION
     Route: 048
     Dates: start: 20130306
  9. CANASA [Concomitant]
     Active Substance: MESALAMINE
     Dosage: AT BEDTIME
     Route: 054
  10. REMERON [Concomitant]
     Active Substance: MIRTAZAPINE
     Route: 048
     Dates: start: 20131212
  11. SIMPONI [Suspect]
     Active Substance: GOLIMUMAB
     Indication: COLITIS ULCERATIVE
     Route: 058
     Dates: start: 20130609, end: 20140623
  12. PREDNISONE. [Suspect]
     Active Substance: PREDNISONE
     Indication: PRODUCT USED FOR UNKNOWN INDICATION
     Dosage: EVERY DAY WITH FOOD SWALLOWING WHOLE
     Route: 048
     Dates: start: 20131023

REACTIONS (1)
  - Herpes zoster [Recovered/Resolved]

NARRATIVE: CASE EVENT DATE: 20140621
